FAERS Safety Report 5646670-1 (Version None)
Quarter: 2008Q1

REPORT INFORMATION
  Report Type: 
  Country: None (occurrence: None)
  Receive Date: 20080303
  Receipt Date: 20080226
  Transmission Date: 20080703
  Serious: Yes (Hospitalization)
  Sender: FDA-Public Use
  Company Number: PHEH2008US02200

PATIENT
  Age: 56 Year
  Sex: Female
  Weight: 46 kg

DRUGS (44)
  1. VOLTAREN [Suspect]
     Indication: RHEUMATOID ARTHRITIS
     Dosage: 75 MG, QD
     Route: 048
     Dates: end: 20050728
  2. VOLTAREN [Suspect]
     Dosage: 100 MG, QD
     Dates: start: 20050728, end: 20050818
  3. ENBREL [Suspect]
     Indication: RHEUMATOID ARTHRITIS
     Dosage: 50 MG, QW
     Route: 058
     Dates: start: 20050519
  4. PREDONINE [Suspect]
     Indication: RHEUMATOID ARTHRITIS
     Dosage: 15 MG, QD
     Route: 048
     Dates: start: 20050317
  5. PREDONINE [Suspect]
     Route: 042
  6. NAUZELIN [Concomitant]
     Route: 054
  7. ALLOID [Concomitant]
     Route: 048
  8. PARIET [Concomitant]
     Route: 048
  9. LAXOBERON [Concomitant]
     Route: 048
  10. GLUCOSE [Concomitant]
  11. DOGMATYL [Concomitant]
  12. DALACIN TOPICO [Concomitant]
  13. MAGNESIUM OXIDE [Concomitant]
  14. FUNGIZONE [Concomitant]
     Route: 048
  15. LECTISOL [Concomitant]
     Route: 048
  16. FESIN [Concomitant]
     Route: 042
  17. OMEPRAL [Concomitant]
  18. PACETCOOL [Concomitant]
     Route: 042
  19. PENTAGIN [Concomitant]
  20. ATARAX [Concomitant]
  21. ERYTHROCIN                              /CAN/ [Concomitant]
  22. DRENISON [Concomitant]
  23. AMOBAN [Concomitant]
     Indication: INSOMNIA
     Dosage: 7.5 MG, QD
     Route: 048
  24. BONALON [Concomitant]
     Indication: OSTEOPOROSIS
     Dosage: 35 MG, QW
     Route: 048
  25. LACTEC G [Concomitant]
  26. TACROLIMUS [Concomitant]
     Indication: RHEUMATOID ARTHRITIS
     Dosage: 2 MG, QD
     Route: 048
     Dates: start: 20050421, end: 20050525
  27. TACROLIMUS [Concomitant]
     Dosage: 1 MG, QD
     Route: 048
     Dates: start: 20050526, end: 20050602
  28. TACROLIMUS [Concomitant]
     Dosage: 0.5 MG, QD
     Route: 048
     Dates: start: 20051005, end: 20051019
  29. TACROLIMUS [Concomitant]
     Dosage: 1 MG, QD
     Route: 048
     Dates: start: 20051020
  30. CAMLEED [Concomitant]
     Indication: RHEUMATOID ARTHRITIS
     Dosage: 50 UG, QD
     Route: 048
  31. ISCOTIN [Concomitant]
     Indication: ANTIBIOTIC PROPHYLAXIS
     Dosage: 300 MG, QD
     Route: 048
     Dates: start: 20050106
  32. BAKTAR [Concomitant]
     Indication: PROPHYLAXIS
     Dosage: 1 UNK, QD
     Route: 048
  33. ALESION [Concomitant]
     Indication: DRUG HYPERSENSITIVITY
     Dosage: 20 MG, QD
     Route: 048
  34. GASTER D [Concomitant]
     Route: 048
  35. NERISONA [Concomitant]
  36. PRIMPERAN INJ [Concomitant]
  37. FERRUM [Concomitant]
     Route: 048
  38. ULCERLMIN [Concomitant]
     Route: 048
  39. LIMETHASONE [Concomitant]
     Indication: RHEUMATOID ARTHRITIS
     Route: 042
  40. BENFOTIAMINE/B6/B12 [Concomitant]
  41. SOLITA-T1 INJECTION [Concomitant]
  42. SOLITA-T3 INJECTION [Concomitant]
  43. LACTEC [Concomitant]
     Route: 051
  44. TAKEPRON [Concomitant]
     Indication: GASTRIC ULCER HAEMORRHAGE
     Dosage: 15 MG, QD
     Route: 048

REACTIONS (11)
  - ABDOMINAL PAIN UPPER [None]
  - ACID FAST BACILLI INFECTION [None]
  - CELLULITIS [None]
  - CELLULITIS STAPHYLOCOCCAL [None]
  - ENDOSCOPY ABNORMAL [None]
  - GASTRIC ULCER [None]
  - INFARCTION [None]
  - NAUSEA [None]
  - PRURIGO [None]
  - PYLORIC STENOSIS [None]
  - PYLORUS DILATATION [None]
